FAERS Safety Report 10901671 (Version 1)
Quarter: 2015Q1

REPORT INFORMATION
  Report Type: Spontaneous
  Country: US (occurrence: None)
  Receive Date: 20150303
  Receipt Date: 20150303
  Transmission Date: 20150721
  Serious: Yes (Other)
  Sender: FDA-Public Use
  Company Number: None

PATIENT
  Age: 57 Year
  Sex: Female
  Weight: 79.38 kg

DRUGS (10)
  1. ESTRAMETHTEST [Concomitant]
  2. ESTRADIOL. [Concomitant]
     Active Substance: ESTRADIOL
  3. ADVIL [Concomitant]
     Active Substance: IBUPROFEN
  4. IMODIUM [Concomitant]
     Active Substance: LOPERAMIDE HYDROCHLORIDE
  5. BUPROPION 100 SR [Concomitant]
  6. GUMMY VITAMINS [Concomitant]
  7. HORMONE REPLACEMENT THERAPY [Concomitant]
     Active Substance: UNSPECIFIED INGREDIENT
  8. PROGESTERONE. [Concomitant]
     Active Substance: PROGESTERONE
  9. BUPROPION XL [Suspect]
     Active Substance: BUPROPION
     Indication: DEPRESSION
     Dosage: A WEEK TO 10DAYS AROUND 1/15/15
     Route: 048
  10. ALEVE [Concomitant]
     Active Substance: NAPROXEN SODIUM

REACTIONS (11)
  - Feeling abnormal [None]
  - Product substitution issue [None]
  - Headache [None]
  - Panic attack [None]
  - Anxiety [None]
  - Restless legs syndrome [None]
  - Pyrexia [None]
  - Product formulation issue [None]
  - Quality of life decreased [None]
  - Disturbance in attention [None]
  - Amnesia [None]

NARRATIVE: CASE EVENT DATE: 20150115
